FAERS Safety Report 6599723-8 (Version None)
Quarter: 2010Q1

REPORT INFORMATION
  Report Type: 
  Country: None (occurrence: None)
  Receive Date: 20100224
  Receipt Date: 20100212
  Transmission Date: 20100710
  Serious: Yes (Other)
  Sender: FDA-Public Use
  Company Number: JP-ROCHE-686816

PATIENT
  Age: 80 Year
  Sex: Male

DRUGS (6)
  1. AVASTIN [Suspect]
     Indication: COLON CANCER METASTATIC
     Route: 041
  2. IRINOTECAN HYDROCHLORIDE [Concomitant]
     Dosage: NOTE: W AND ?2-4/SIX CYCLES
     Route: 041
  3. LEVOFOLINATE [Concomitant]
     Route: 041
  4. LEVOFOLINATE [Concomitant]
     Dosage: NOTE: W AND ?2-4/SIX CYCLES.
     Route: 041
  5. 5-FU [Concomitant]
     Route: 041
  6. 5-FU [Concomitant]
     Dosage: NOTE: W AND ?2-4/SIX CYCLES.
     Route: 041

REACTIONS (1)
  - HEPATIC NEOPLASM MALIGNANT [None]
